FAERS Safety Report 6845013 (Version 4)
Quarter: 2012Q4

REPORT INFORMATION
  Report Type: 
  Country: FR (occurrence: FR)
  Receive Date: 20081212
  Receipt Date: 20120921
  Transmission Date: 20130627
  Serious: Yes (Hospitalization, Other)
  Sender: FDA-Public Use
  Company Number: FR-ABBOTT-08P-056-0491039-00

PATIENT
  Age: 74 Year
  Sex: Female

DRUGS (2)
  1. HUMIRA 40 MG/ 0.8 ML PRE-FILLED SYRINGE [Suspect]
     Indication: COLITIS ULCERATIVE
     Route: 058
     Dates: start: 20080528, end: 20080528
  2. FLAGYL [Suspect]
     Indication: CLOSTRIDIAL INFECTION
     Route: 048
     Dates: start: 20020505, end: 20080602

REACTIONS (14)
  - Guillain-Barre syndrome [Unknown]
  - Neuropathy peripheral [Not Recovered/Not Resolved]
  - Abasia [Unknown]
  - Neurological symptom [Unknown]
  - Polyneuropathy [Unknown]
  - Paraesthesia [Unknown]
  - Mobility decreased [Unknown]
  - Diplopia [Unknown]
  - Condition aggravated [Unknown]
  - Nausea [Unknown]
  - Vomiting [Unknown]
  - Dysarthria [Unknown]
  - Paraesthesia [Unknown]
  - Visual impairment [Unknown]
